FAERS Safety Report 11148665 (Version 1)
Quarter: 2015Q2

REPORT INFORMATION
  Report Type: Spontaneous
  Country: US (occurrence: None)
  Receive Date: 20150527
  Receipt Date: 20150527
  Transmission Date: 20150821
  Serious: Yes (Death, Hospitalization)
  Sender: FDA-Public Use
  Company Number: FK201502398

PATIENT
  Age: 79 Year
  Sex: Female

DRUGS (2)
  1. GEMCITABINE [Suspect]
     Active Substance: GEMCITABINE\GEMCITABINE HYDROCHLORIDE
     Indication: PANCREATIC CARCINOMA METASTATIC
     Dosage: ON DAYS 1,8, AND 15 OF A 28-DAY CYCLE
     Dates: start: 20130520
  2. NAB-PACLITAXEL (PAXLITAXEL) [Suspect]
     Active Substance: PACLITAXEL
     Dosage: ON DAYS 1,8,15 OF A 28-DAY CYCLE
     Dates: start: 20130520

REACTIONS (13)
  - Neutropenia [None]
  - Pneumonia aspiration [None]
  - Anaemia [None]
  - Thrombocytopenia [None]
  - Transfusion related complication [None]
  - Parkinson^s disease [None]
  - Pulmonary oedema [None]
  - Tremor [None]
  - Disease progression [None]
  - Pleural effusion [None]
  - Drug tolerance decreased [None]
  - Pneumonia [None]
  - Metabolic disorder [None]
